FAERS Safety Report 18359836 (Version 2)
Quarter: 2020Q4

REPORT INFORMATION
  Report Type: Report from Study
  Country: NL (occurrence: NL)
  Receive Date: 20201008
  Receipt Date: 20201029
  Transmission Date: 20210114
  Serious: Yes (Life-Threatening, Hospitalization)
  Sender: FDA-Public Use
  Company Number: NVSC2020NL015633

PATIENT
  Age: 34 Year
  Sex: Female

DRUGS (3)
  1. RAD 666 / RAD 001A [Suspect]
     Active Substance: EVEROLIMUS
     Indication: METASTATIC NEOPLASM
     Dosage: 7.5 MG, 1- 21 DAYS
     Route: 048
     Dates: start: 20191114, end: 20191230
  2. CISPLATIN. [Suspect]
     Active Substance: CISPLATIN
     Indication: METASTATIC NEOPLASM
     Dosage: 75 MG/M2, ONE DAY
     Route: 042
     Dates: start: 20191114, end: 20200120
  3. RAD 666 / RAD 001A [Suspect]
     Active Substance: EVEROLIMUS
     Dosage: UNK
     Route: 048
     Dates: start: 20200109, end: 20200120

REACTIONS (2)
  - Urinary tract infection [Recovered/Resolved]
  - Hyperglycaemia [Recovered/Resolved]

NARRATIVE: CASE EVENT DATE: 20200109
